FAERS Safety Report 10584062 (Version 1)
Quarter: 2014Q4

REPORT INFORMATION
  Report Type: Spontaneous
  Country: GM (occurrence: None)
  Receive Date: 20141113
  Receipt Date: 20141113
  Transmission Date: 20150529
  Serious: No
  Sender: FDA-Public Use
  Company Number: None

PATIENT
  Age: 63 Year
  Sex: Female

DRUGS (1)
  1. CORTANCYL [Suspect]
     Active Substance: PREDNISONE
     Dosage: 2  THREE TIMES DAILY  TAKEN BY MOUTH
     Route: 048

REACTIONS (6)
  - Discomfort [None]
  - Dry skin [None]
  - Skin tightness [None]
  - Muscle tightness [None]
  - Musculoskeletal stiffness [None]
  - Incorrect drug administration duration [None]

NARRATIVE: CASE EVENT DATE: 20141112
